FAERS Safety Report 5211849-X (Version None)
Quarter: 2007Q1

REPORT INFORMATION
  Report Type: 
  Country: None (occurrence: None)
  Receive Date: 20070118
  Receipt Date: 20070108
  Transmission Date: 20070707
  Serious: Yes (Other)
  Sender: FDA-Public Use
  Company Number: US-ELI_LILLY_AND_COMPANY-US200612000770

PATIENT
  Age: 63 Year
  Sex: Female

DRUGS (3)
  1. FORTEO [Suspect]
     Indication: OSTEOPOROSIS
     Dosage: UNK, UNK
     Dates: start: 20041101, end: 20060101
  2. SYNTHROID [Concomitant]
     Dosage: 0.1 MG, DAILY (1/D)
  3. PREVACID [Concomitant]
     Dosage: 30 MG, AS NEEDED

REACTIONS (6)
  - ALBUMIN GLOBULIN RATIO DECREASED [None]
  - ARTERIOSCLEROSIS CORONARY ARTERY [None]
  - BLOOD CHOLESTEROL INCREASED [None]
  - BREAST CANCER METASTATIC [None]
  - HIATUS HERNIA [None]
  - LOW DENSITY LIPOPROTEIN INCREASED [None]
